FAERS Safety Report 17938564 (Version 1)
Quarter: 2020Q2

REPORT INFORMATION
  Report Type: Report from Study
  Country: None (occurrence: AU)
  Receive Date: 20200625
  Receipt Date: 20200625
  Transmission Date: 20200714
  Serious: Yes (Other)
  Sender: FDA-Public Use
  Company Number: AU-ABBVIE-20K-008-3458075-00

PATIENT
  Sex: Male

DRUGS (2)
  1. COSUDEX [Suspect]
     Active Substance: BICALUTAMIDE
     Indication: PRODUCT USED FOR UNKNOWN INDICATION
     Route: 065
     Dates: start: 2020
  2. LUCRIN DEPOT [Suspect]
     Active Substance: LEUPROLIDE ACETATE
     Indication: PROSTATE CANCER
     Route: 030
     Dates: start: 20200129

REACTIONS (3)
  - Hypoacusis [Not Recovered/Not Resolved]
  - Meniere^s disease [Unknown]
  - Asthenia [Unknown]

NARRATIVE: CASE EVENT DATE: 2020
